FAERS Safety Report 23973088 (Version 1)
Quarter: 2024Q2

REPORT INFORMATION
  Report Type: Spontaneous
  Country: US (occurrence: US)
  Receive Date: 20240613
  Receipt Date: 20240613
  Transmission Date: 20240716
  Serious: Yes (Other)
  Sender: FDA-Public Use
  Company Number: US-FreseniusKabi-FK202409077

PATIENT

DRUGS (2)
  1. HEPARIN SODIUM [Suspect]
     Active Substance: HEPARIN SODIUM
     Indication: Coronary artery bypass
     Dosage: 30000 USP UNITS IN 30 ML?FORM OF ADMIN: INJECTION
  2. PROTAMINE SULFATE [Suspect]
     Active Substance: PROTAMINE SULFATE
     Indication: Coronary artery bypass
     Dosage: PROTAMINE 5 ML?FORM OF ADMIN: INJECTION OF INFUSION

REACTIONS (1)
  - Transplant failure [Unknown]
